FAERS Safety Report 24193633 (Version 1)
Quarter: 2024Q3

REPORT INFORMATION
  Report Type: Spontaneous
  Country: US (occurrence: US)
  Receive Date: 20240809
  Receipt Date: 20240809
  Transmission Date: 20241017
  Serious: Yes (Disabling)
  Sender: TEVA
  Company Number: US-TEVA-VS-3216377

PATIENT
  Sex: Female

DRUGS (1)
  1. DOCETAXEL [Suspect]
     Active Substance: DOCETAXEL\DOCETAXEL ANHYDROUS
     Indication: Product used for unknown indication
     Dosage: FROM APPROXIMATELY AUGUST 26, 2013 THROUGH OCTOBER 28, 2013
     Route: 065

REACTIONS (2)
  - Lacrimation increased [Unknown]
  - Lacrimal structure injury [Unknown]
